FAERS Safety Report 12520407 (Version 1)
Quarter: 2016Q3

REPORT INFORMATION
  Report Type: Spontaneous
  Country: GB (occurrence: GB)
  Receive Date: 20160701
  Receipt Date: 20160701
  Transmission Date: 20161109
  Serious: Yes (Other)
  Sender: FDA-Public Use
  Company Number: GB-ACCORD-041907

PATIENT
  Age: 43 Year
  Sex: Female
  Weight: 52 kg

DRUGS (3)
  1. PREDNISOLONE. [Concomitant]
     Active Substance: PREDNISOLONE
  2. METHOTREXATE. [Suspect]
     Active Substance: METHOTREXATE
     Indication: ARTHRITIS REACTIVE
     Dosage: INITIAL DOSE 10 MG ONCE A WEEK FROM 13-APR-2016, INCREASING TO 15MG, ONCE A WEEK TILL 22-JUN-2016.
     Route: 051
     Dates: end: 20160522
  3. AMLODIPINE [Concomitant]
     Active Substance: AMLODIPINE BESYLATE

REACTIONS (10)
  - Rash [Recovering/Resolving]
  - Erythema [Recovering/Resolving]
  - Skin atrophy [Unknown]
  - Alopecia [Recovering/Resolving]
  - Skin exfoliation [Recovering/Resolving]
  - Feeling hot [Recovering/Resolving]
  - Papule [Recovering/Resolving]
  - Skin haemorrhage [Unknown]
  - Skin tightness [Recovering/Resolving]
  - Skin disorder [Recovering/Resolving]

NARRATIVE: CASE EVENT DATE: 20160420
